FAERS Safety Report 6767253-6 (Version None)
Quarter: 2010Q2

REPORT INFORMATION
  Report Type: 
  Country: None (occurrence: None)
  Receive Date: 20100614
  Receipt Date: 20100603
  Transmission Date: 20101027
  Serious: Yes (Other)
  Sender: FDA-Public Use
  Company Number: US-JNJFOC-20100601758

PATIENT
  Age: 46 Year
  Sex: Female
  Weight: 83.92 kg

DRUGS (7)
  1. SIMPONI [Suspect]
     Indication: ANKYLOSING SPONDYLITIS
     Route: 058
  2. CORTISONE [Concomitant]
     Indication: BURSITIS
     Route: 050
  3. PREDNISONE [Concomitant]
  4. OXYCODONE HCL AND ACETAMINOPHEN [Concomitant]
  5. MULTIVIT [Concomitant]
  6. TYLENOL [Concomitant]
  7. ASPIRIN [Concomitant]

REACTIONS (5)
  - DEEP VEIN THROMBOSIS [None]
  - HYPERTENSION [None]
  - PAIN [None]
  - SCIATICA [None]
  - SWELLING [None]
